FAERS Safety Report 4902427-8 (Version None)
Quarter: 2006Q1

REPORT INFORMATION
  Report Type: 
  Country: None (occurrence: None)
  Receive Date: 20060202
  Receipt Date: 20051129
  Transmission Date: 20060701
  Serious: Yes (Life-Threatening, Hospitalization)
  Sender: FDA-Public Use
  Company Number: 221578

PATIENT
  Age: 66 Year
  Sex: Female

DRUGS (5)
  1. AVASTIN [Suspect]
     Indication: COLON CANCER
     Dosage: 477 MG, Q3W, INTRAVENOUS
     Route: 042
     Dates: start: 20051123, end: 20051214
  2. CAPECITABINE (CAPECITABINE) [Suspect]
     Indication: COLON CANCER
     Dosage: 1650 MG, BID, ORAL
     Route: 048
     Dates: start: 20051123, end: 20051214
  3. OXALIPLATIN (OXALIPLATIN) [Suspect]
     Indication: COLON CANCER
     Dosage: 2.8 MG, Q3W, INTRAVENOUS
     Route: 042
     Dates: start: 20051123, end: 20051214
  4. GRANISETRON  HCL [Concomitant]
  5. DEXAMETHASONE [Concomitant]

REACTIONS (1)
  - CHEST PAIN [None]
